FAERS Safety Report 11856521 (Version 1)
Quarter: 2015Q4

REPORT INFORMATION
  Report Type: Spontaneous
  Country: US (occurrence: US)
  Receive Date: 20151221
  Receipt Date: 20151221
  Transmission Date: 20160305
  Serious: Yes (Other)
  Sender: FDA-Public Use
  Company Number: US-BAYER-2015-487673

PATIENT
  Age: 61 Year
  Sex: Male

DRUGS (2)
  1. BAYER GENUINE ASPIRIN [Suspect]
     Active Substance: ASPIRIN
     Indication: PRODUCT USED FOR UNKNOWN INDICATION
     Route: 065
  2. HUMIRA [Suspect]
     Active Substance: ADALIMUMAB
     Indication: RHEUMATOID ARTHRITIS
     Dosage: 40 MG, 1 IN 2 WEEK
     Route: 058

REACTIONS (9)
  - Haemorrhage [None]
  - Large intestinal haemorrhage [None]
  - Gastric haemorrhage [None]
  - Fall [None]
  - Rectal haemorrhage [None]
  - Back pain [None]
  - Thyroid disorder [None]
  - Oropharyngeal pain [None]
  - Back injury [None]

NARRATIVE: CASE EVENT DATE: 201412
